FAERS Safety Report 6864409-9 (Version None)
Quarter: 2010Q3

REPORT INFORMATION
  Report Type: 
  Country: None (occurrence: None)
  Receive Date: 20100721
  Receipt Date: 20090616
  Transmission Date: 20110219
  Serious: No
  Sender: FDA-Public Use
  Company Number: US-PFIZER INC-2008026175

PATIENT
  Sex: Female
  Weight: 61.4 kg

DRUGS (6)
  1. CHANTIX [Suspect]
     Indication: SMOKING CESSATION THERAPY
     Dosage: 1 MG, 2X/DAY
     Route: 048
     Dates: start: 20080307, end: 20080101
  2. PERCOCET [Concomitant]
  3. XANAX [Concomitant]
  4. ZANAFLEX [Concomitant]
  5. MORPHINE [Concomitant]
  6. IBUPROFEN [Concomitant]

REACTIONS (3)
  - CONSTIPATION [None]
  - DRUG INEFFECTIVE [None]
  - URINE OUTPUT DECREASED [None]
